FAERS Safety Report 21188591 (Version 1)
Quarter: 2022Q3

REPORT INFORMATION
  Report Type: Spontaneous
  Country: US (occurrence: US)
  Receive Date: 20220809
  Receipt Date: 20220809
  Transmission Date: 20221027
  Serious: No
  Sender: FDA-Public Use
  Company Number: US-IGSA-BIG0018850

PATIENT
  Sex: Female

DRUGS (18)
  1. GAMUNEX-C [Suspect]
     Active Substance: HUMAN IMMUNOGLOBULIN G
     Indication: Chronic inflammatory demyelinating polyradiculoneuropathy
     Dosage: 35 GRAM, Q.3WK.
     Route: 042
     Dates: start: 20200512
  2. GAMUNEX-C [Suspect]
     Active Substance: HUMAN IMMUNOGLOBULIN G
     Dosage: 35 GRAM, Q.3WK.
     Route: 042
  3. COLCHICINE [Concomitant]
     Active Substance: COLCHICINE
  4. LYRICA [Concomitant]
     Active Substance: PREGABALIN
  5. CORTISPORIN EYE [Concomitant]
  6. PROMETHAZINE [Concomitant]
     Active Substance: PROMETHAZINE HYDROCHLORIDE
  7. ZOLOFT [Concomitant]
     Active Substance: SERTRALINE HYDROCHLORIDE
  8. AMLODIPINE [Concomitant]
     Active Substance: AMLODIPINE BESYLATE
  9. CLARITHROMYCIN [Concomitant]
     Active Substance: CLARITHROMYCIN
  10. AMLODIPINE BESYLATE [Concomitant]
     Active Substance: AMLODIPINE BESYLATE
  11. ASPIRIN [Concomitant]
     Active Substance: ASPIRIN
  12. CLONAZEPAM [Concomitant]
     Active Substance: CLONAZEPAM
  13. PHENYTOIN SODIUM [Concomitant]
     Active Substance: PHENYTOIN SODIUM
  14. DORZOLAMIDE [Concomitant]
     Active Substance: DORZOLAMIDE
  15. GABAPENTIN [Concomitant]
     Active Substance: GABAPENTIN
  16. VENTOLIN HFA [Concomitant]
     Active Substance: ALBUTEROL SULFATE
  17. VITAMIN B12 [Concomitant]
     Active Substance: CYANOCOBALAMIN
  18. VITAMIN D3 [Concomitant]
     Active Substance: CHOLECALCIFEROL

REACTIONS (1)
  - Chills [Recovered/Resolved]
